FAERS Safety Report 24526748 (Version 1)
Quarter: 2024Q4

REPORT INFORMATION
  Report Type: Spontaneous
  Country: US (occurrence: US)
  Receive Date: 20241021
  Receipt Date: 20241021
  Transmission Date: 20250114
  Serious: No
  Sender: ROCHE
  Company Number: US-ROCHE-3493983

PATIENT
  Age: 51 Year
  Sex: Male

DRUGS (12)
  1. VEMURAFENIB [Suspect]
     Active Substance: VEMURAFENIB
     Indication: Lymphadenopathy
     Route: 065
     Dates: start: 2013
  2. VEMURAFENIB [Suspect]
     Active Substance: VEMURAFENIB
     Route: 065
     Dates: start: 201410
  3. DABRAFENIB [Concomitant]
     Active Substance: DABRAFENIB
     Dates: start: 201410, end: 201509
  4. PEMBROLIZUMAB [Concomitant]
     Active Substance: PEMBROLIZUMAB
     Dates: start: 201509, end: 201803
  5. ALDESLEUKIN [Concomitant]
     Active Substance: ALDESLEUKIN
  6. FLUOROURACIL [Concomitant]
     Active Substance: FLUOROURACIL
     Dates: start: 2021
  7. LEUCOVORIN [Concomitant]
     Active Substance: LEUCOVORIN\LEUCOVORIN CALCIUM
     Dates: start: 2021
  8. IRINOTECAN [Concomitant]
     Active Substance: IRINOTECAN
     Dates: start: 2021
  9. OXALIPLATIN [Concomitant]
     Active Substance: OXALIPLATIN
     Dates: start: 2021
  10. LEUCOVORIN [Concomitant]
     Active Substance: LEUCOVORIN\LEUCOVORIN CALCIUM
     Dates: start: 2021
  11. GEMCITABINE [Concomitant]
     Active Substance: GEMCITABINE
  12. PACLITAXEL [Concomitant]
     Active Substance: PACLITAXEL

REACTIONS (1)
  - Rash [Unknown]

NARRATIVE: CASE EVENT DATE: 20130101
